FAERS Safety Report 4304845-8 (Version None)
Quarter: 2004Q1

REPORT INFORMATION
  Report Type: 
  Country: None (occurrence: None)
  Receive Date: 20040226
  Receipt Date: 20031222
  Transmission Date: 20041129
  Serious: No
  Sender: FDA-Public Use
  Company Number: US-GLAXOSMITHKLINE-A0443902A

PATIENT
  Age: 57 Year
  Sex: Female

DRUGS (6)
  1. WELLBUTRIN XL [Suspect]
     Indication: DEPRESSION
     Dosage: 150MG PER DAY
     Route: 048
     Dates: start: 20031219
  2. KLONOPIN [Concomitant]
  3. ESTROGEN [Concomitant]
  4. COZAAR [Concomitant]
  5. ZOCOR [Concomitant]
  6. ATENOLOL [Concomitant]

REACTIONS (1)
  - INSOMNIA [None]
